FAERS Safety Report 10064496 (Version 1)
Quarter: 2014Q2

REPORT INFORMATION
  Report Type: Spontaneous
  Country: IT (occurrence: IT)
  Receive Date: 20140408
  Receipt Date: 20140408
  Transmission Date: 20141212
  Serious: Yes (Life-Threatening)
  Sender: FDA-Public Use
  Company Number: IT-ROCHE-1379742

PATIENT
  Age: 69 Year
  Sex: Male

DRUGS (2)
  1. LUCENTIS [Suspect]
     Indication: AGE-RELATED MACULAR DEGENERATION
     Route: 050
     Dates: start: 20110829
  2. LUCENTIS [Suspect]
     Route: 050
     Dates: start: 20140113

REACTIONS (1)
  - Acute myocardial infarction [Recovered/Resolved with Sequelae]
